FAERS Safety Report 19813239 (Version 2)
Quarter: 2021Q3

REPORT INFORMATION
  Report Type: Report from Study
  Country: KR (occurrence: KR)
  Receive Date: 20210910
  Receipt Date: 20210917
  Transmission Date: 20211014
  Serious: Yes (Hospitalization, Other)
  Sender: FDA-Public Use
  Company Number: KR-UNITED THERAPEUTICS-UNT-2021-017335

PATIENT
  Age: 66 Year
  Sex: Male
  Weight: 52 kg

DRUGS (13)
  1. AMBRISENTAN [Concomitant]
     Active Substance: AMBRISENTAN
     Indication: PROPHYLAXIS
     Dosage: 5 MG, TOTAL DIALY DOSE
     Route: 065
     Dates: start: 20200424
  2. NICOTINATE [Concomitant]
     Indication: PROPHYLAXIS
     Dosage: 2.5 MG, TOTAL DAILY DOSE
     Route: 065
     Dates: start: 20190709
  3. DIGOXIN. [Concomitant]
     Active Substance: DIGOXIN
     Indication: PROPHYLAXIS
     Dosage: 0.25 MG, TOTAL DAILY DOSE
     Route: 065
     Dates: start: 20191220
  4. SPIRONOLACTONE. [Concomitant]
     Active Substance: SPIRONOLACTONE
     Indication: ASCITES
     Dosage: 50 MG, TOTAL DAILY DOSE
     Route: 065
     Dates: start: 20200613
  5. FUROSEMIDE. [Concomitant]
     Active Substance: FUROSEMIDE
     Indication: ASCITES
     Dosage: 40 MG, TOTAL DAILY DOSE
     Route: 065
     Dates: start: 20200613
  6. FERROUS SULFATE. [Concomitant]
     Active Substance: FERROUS SULFATE
     Indication: ANAEMIA
     Dosage: UNK (2 TAB TOTAL DAILY DOSE)
     Route: 065
     Dates: start: 20210429
  7. PAHTENSION [Concomitant]
     Active Substance: SILDENAFIL CITRATE
     Indication: PROPHYLAXIS
     Dosage: 60 MG, TOTAL DAILY DOSE
     Route: 065
     Dates: start: 20150113
  8. PANTOPRAZOLE [Concomitant]
     Active Substance: PANTOPRAZOLE
     Indication: GASTROOESOPHAGEAL REFLUX DISEASE
     Dosage: 40 MG, TOTAL DAILY DOSE
     Route: 065
     Dates: start: 20200613
  9. UT?15C SR [Suspect]
     Active Substance: TREPROSTINIL DIOLAMINE
     Indication: PULMONARY ARTERIAL HYPERTENSION
     Dosage: 0.25 MG, TID
     Route: 048
     Dates: start: 20180515
  10. ENTEONE [Concomitant]
     Indication: HEPATOCELLULAR CARCINOMA
     Dosage: 0.5 MG, TOTAL DAILY DOSE
     Route: 065
     Dates: start: 20181210
  11. SODIUM ALGINATE [Concomitant]
     Active Substance: SODIUM ALGINATE
     Indication: VARICES OESOPHAGEAL
     Dosage: 60 ML, TOTAL DAILY DOSE
     Route: 065
     Dates: start: 20200530
  12. AMLODIPINE [Concomitant]
     Active Substance: AMLODIPINE BESYLATE
     Indication: PROPHYLAXIS
     Dosage: 2.5 MG, TOTAL DAILY DOSE
     Route: 065
     Dates: start: 20190709
  13. MEGESTROL ACETATE. [Concomitant]
     Active Substance: MEGESTROL ACETATE
     Indication: WEIGHT DECREASED
     Dosage: 5 ML, TOTAL DAILY DOSE
     Route: 065
     Dates: start: 20210429

REACTIONS (1)
  - Gastrointestinal vascular malformation haemorrhagic [Recovered/Resolved]

NARRATIVE: CASE EVENT DATE: 20210512
